FAERS Safety Report 17780194 (Version 1)
Quarter: 2020Q2

REPORT INFORMATION
  Report Type: Spontaneous
  Country: ES (occurrence: ES)
  Receive Date: 20200514
  Receipt Date: 20200514
  Transmission Date: 20200714
  Serious: Yes (Hospitalization)
  Sender: FDA-Public Use
  Company Number: ES-TEVA-2020-ES-1233691

PATIENT
  Age: 27 Year
  Sex: Male

DRUGS (5)
  1. TOCILIZUMAB (8289A) [Suspect]
     Active Substance: TOCILIZUMAB
     Indication: CORONAVIRUS INFECTION
  2. HIDROXICLOROQUINA (2143A) [Suspect]
     Active Substance: HYDROXYCHLOROQUINE
     Indication: PNEUMONIA
     Dosage: 800MG DAY (LOAD) FOLLOWED 400 MG DAY
     Route: 048
     Dates: start: 20200414, end: 20200414
  3. HIDROXICLOROQUINA (2143A) [Suspect]
     Active Substance: HYDROXYCHLOROQUINE
     Indication: CORONAVIRUS INFECTION
     Dosage: 400 MG
     Route: 048
     Dates: start: 20200415, end: 20200419
  4. IVERMECTINA (7778A) [Suspect]
     Active Substance: IVERMECTIN
     Indication: PROPHYLAXIS
     Dosage: 12 MG DU
     Route: 048
     Dates: start: 20200414, end: 20200414
  5. TOCILIZUMAB (8289A) [Suspect]
     Active Substance: TOCILIZUMAB
     Indication: CYTOKINE RELEASE SYNDROME
     Dosage: 600 MG
     Route: 042
     Dates: start: 20200414, end: 20200414

REACTIONS (1)
  - Hepatitis [Recovering/Resolving]

NARRATIVE: CASE EVENT DATE: 20200417
